FAERS Safety Report 4880063-X (Version None)
Quarter: 2006Q1

REPORT INFORMATION
  Report Type: 
  Country: None (occurrence: None)
  Receive Date: 20060113
  Receipt Date: 20051223
  Transmission Date: 20060701
  Serious: Yes (Death, Hospitalization)
  Sender: FDA-Public Use
  Company Number: HU-BRISTOL-MYERS SQUIBB COMPANY-13228879

PATIENT
  Age: 69 Year
  Sex: Female
  Weight: 84 kg

DRUGS (8)
  1. CYCLOPHOSPHAMIDE [Suspect]
     Indication: BREAST CANCER
     Dosage: THERAPY INITIATED 02-AUG-2005
     Route: 042
     Dates: start: 20050913, end: 20050913
  2. PEMETREXED DISODIUM [Suspect]
     Indication: BREAST CANCER
     Dosage: THERAPY INITIATED 02-AUG-2005
     Route: 042
     Dates: start: 20050913, end: 20050913
  3. FOLIC ACID [Concomitant]
     Indication: VITAMIN SUPPLEMENTATION
     Dates: start: 20050722
  4. VITAMIN B-12 [Concomitant]
     Indication: VITAMIN SUPPLEMENTATION
     Dates: start: 20050722
  5. DEXAMETHASONE TAB [Concomitant]
     Dates: start: 20050801
  6. CATAFLAM [Concomitant]
     Indication: PAIN
     Dates: start: 20050610
  7. AMLODIPINE [Concomitant]
     Indication: HYPERTENSION
     Dates: start: 20050201
  8. AMINOFILINA [Concomitant]
     Indication: DYSPNOEA
     Dates: start: 20050201

REACTIONS (8)
  - ANAEMIA [None]
  - CARDIOPULMONARY FAILURE [None]
  - FEBRILE NEUTROPENIA [None]
  - MUCOSAL INFLAMMATION [None]
  - NAUSEA [None]
  - NEUTROPENIA [None]
  - SHOCK [None]
  - VOMITING [None]
